FAERS Safety Report 18464917 (Version 1)
Quarter: 2020Q4

REPORT INFORMATION
  Report Type: Spontaneous
  Country: CA (occurrence: CA)
  Receive Date: 20201105
  Receipt Date: 20201105
  Transmission Date: 20210114
  Serious: Yes (Other)
  Sender: FDA-Public Use
  Company Number: CA-ROCHE-2706389

PATIENT
  Sex: Female

DRUGS (4)
  1. CELLCEPT [Suspect]
     Active Substance: MYCOPHENOLATE MOFETIL\MYCOPHENOLATE MOFETIL HYDROCHLORIDE
     Indication: PRODUCT USED FOR UNKNOWN INDICATION
     Route: 065
     Dates: start: 201910, end: 202001
  2. METHOTREXATE SODIUM. [Suspect]
     Active Substance: METHOTREXATE SODIUM
     Indication: PRODUCT USED FOR UNKNOWN INDICATION
     Route: 065
     Dates: start: 201811, end: 201902
  3. PREDNISONE. [Concomitant]
     Active Substance: PREDNISONE
     Route: 048
  4. STELARA [Concomitant]
     Active Substance: USTEKINUMAB
     Route: 058
     Dates: start: 202001, end: 202009

REACTIONS (3)
  - Drug intolerance [Unknown]
  - Drug hypersensitivity [Unknown]
  - Psoriasis [Unknown]
